FAERS Safety Report 10361373 (Version 1)
Quarter: 2014Q3

REPORT INFORMATION
  Report Type: Report from Study
  Country: US (occurrence: US)
  Receive Date: 20140805
  Receipt Date: 20140805
  Transmission Date: 20150326
  Serious: Yes (Other)
  Sender: FDA-Public Use
  Company Number: US-ROCHE-1443920

PATIENT
  Age: 65 Year
  Sex: Male
  Weight: 125.94 kg

DRUGS (6)
  1. LEVOTHYROXINE [Concomitant]
     Active Substance: LEVOTHYROXINE
     Indication: HYPOTHYROIDISM
     Dosage: PER DAY PLUS AN EXTRA HALF TABLET ON SUNDAY
     Route: 065
  2. SIMVASTATIN. [Concomitant]
     Active Substance: SIMVASTATIN
     Indication: HYPERLIPIDAEMIA
     Route: 065
  3. NUTROPIN AQ [Suspect]
     Active Substance: SOMATROPIN
     Indication: HYPOPITUITARISM
     Route: 058
  4. CABERGOLINE. [Concomitant]
     Active Substance: CABERGOLINE
     Indication: HYPERPROLACTINAEMIA
     Route: 065
  5. HYDROCORTISONE. [Concomitant]
     Active Substance: HYDROCORTISONE
     Indication: ADRENAL INSUFFICIENCY
     Dosage: 1 IN MORNING AND A HALF TABLET IN THE AFTERNOON
     Route: 065
  6. TESTOSTERONE. [Concomitant]
     Active Substance: TESTOSTERONE
     Indication: ANDROGEN DEFICIENCY
     Dosage: STRENGTH: 100 MG/ML
     Route: 065

REACTIONS (7)
  - Rhinorrhoea [Unknown]
  - Hypoacusis [Unknown]
  - Paranasal sinus mucosal hypertrophy [Unknown]
  - Gastrooesophageal reflux disease [Unknown]
  - Ear infection fungal [Unknown]
  - Nasal obstruction [Unknown]
  - Nasal congestion [Unknown]

NARRATIVE: CASE EVENT DATE: 20120604
